FAERS Safety Report 11760865 (Version 1)
Quarter: 2015Q4

REPORT INFORMATION
  Report Type: Spontaneous
  Country: FR (occurrence: FR)
  Receive Date: 20151120
  Receipt Date: 20151120
  Transmission Date: 20160304
  Serious: Yes (Hospitalization)
  Sender: FDA-Public Use
  Company Number: FR-PFIZER INC-2015393324

PATIENT
  Age: 87 Year
  Sex: Male

DRUGS (4)
  1. ESOMEPRAZOLE MAGNESIUM. [Suspect]
     Active Substance: ESOMEPRAZOLE MAGNESIUM
  2. CLOPIDOGREL [Suspect]
     Active Substance: CLOPIDOGREL BISULFATE
  3. AMIODARONE [Concomitant]
     Active Substance: AMIODARONE
  4. SPIRONOLACTONE. [Suspect]
     Active Substance: SPIRONOLACTONE

REACTIONS (4)
  - Hyponatraemia [Recovered/Resolved]
  - Inappropriate antidiuretic hormone secretion [Unknown]
  - Blood creatinine increased [Recovered/Resolved]
  - Haematuria [Recovered/Resolved]
